FAERS Safety Report 18975878 (Version 4)
Quarter: 2022Q2

REPORT INFORMATION
  Report Type: Report from Study
  Country: JP (occurrence: JP)
  Receive Date: 20210305
  Receipt Date: 20220419
  Transmission Date: 20220721
  Serious: Yes (Death, Life-Threatening, Disabling, Other)
  Sender: FDA-Public Use
  Company Number: JP-ARIAD PHARMACEUTICALS, INC-2016JP007424

PATIENT
  Age: 24 Year
  Sex: Male
  Weight: 62 kg

DRUGS (18)
  1. PONATINIB [Suspect]
     Active Substance: PONATINIB
     Indication: Chronic myeloid leukaemia transformation
     Dosage: 45 MILLIGRAM, QD
     Route: 048
     Dates: start: 20161007, end: 20161124
  2. PONATINIB [Suspect]
     Active Substance: PONATINIB
     Dosage: 15 MILLIGRAM, QD
     Route: 048
     Dates: start: 20161125, end: 20170203
  3. PONATINIB [Suspect]
     Active Substance: PONATINIB
     Dosage: 45 MILLIGRAM, QD
     Route: 048
     Dates: start: 20170204, end: 20170615
  4. PONATINIB [Suspect]
     Active Substance: PONATINIB
     Dosage: 30 MILLIGRAM, QD
     Route: 048
     Dates: start: 20170616, end: 20170622
  5. PONATINIB [Suspect]
     Active Substance: PONATINIB
     Dosage: 45 MILLIGRAM, QD
     Route: 048
     Dates: start: 20170623, end: 20171207
  6. ONCOVIN [Suspect]
     Active Substance: VINCRISTINE SULFATE
     Indication: Chronic myeloid leukaemia transformation
     Dosage: UNK
     Route: 065
     Dates: start: 20160928, end: 20161006
  7. ONCOVIN [Suspect]
     Active Substance: VINCRISTINE SULFATE
     Dosage: UNK
     Route: 065
     Dates: start: 20161219, end: 20161228
  8. CYTARABINE [Suspect]
     Active Substance: CYTARABINE
     Indication: Chronic myeloid leukaemia transformation
     Dosage: UNK
     Route: 065
     Dates: start: 20160928, end: 20161006
  9. CYTARABINE [Suspect]
     Active Substance: CYTARABINE
     Dosage: UNK
     Route: 065
     Dates: start: 20161219, end: 20161228
  10. ETOPOSIDE [Suspect]
     Active Substance: ETOPOSIDE
     Indication: Chronic myeloid leukaemia transformation
     Dosage: UNK
     Route: 065
     Dates: start: 20160928, end: 20161006
  11. ETOPOSIDE [Suspect]
     Active Substance: ETOPOSIDE
     Dosage: UNK
     Route: 065
     Dates: start: 20161219, end: 20161228
  12. VINDESINE SULFATE [Suspect]
     Active Substance: VINDESINE SULFATE
     Indication: Chronic myeloid leukaemia transformation
     Dosage: UNK
     Route: 065
     Dates: start: 20160928, end: 20161006
  13. VINDESINE SULFATE [Suspect]
     Active Substance: VINDESINE SULFATE
     Dosage: UNK
     Route: 065
     Dates: start: 20161219, end: 20161228
  14. VEPSIDE [Concomitant]
     Indication: Product used for unknown indication
     Dosage: UNK
     Route: 065
     Dates: start: 20171003, end: 20171110
  15. HYDREA [Concomitant]
     Active Substance: HYDROXYUREA
     Indication: Product used for unknown indication
     Dosage: UNK
     Route: 065
     Dates: start: 20171102, end: 20171109
  16. FLUCONAZOLE [Concomitant]
     Active Substance: FLUCONAZOLE
     Indication: Prophylaxis
     Dosage: UNK
     Route: 065
     Dates: end: 20171207
  17. NEORAL [Concomitant]
     Active Substance: CYCLOSPORINE
     Indication: Product used for unknown indication
     Dosage: UNK
     Route: 065
     Dates: end: 20170209
  18. CLARITHROMYCIN [Concomitant]
     Active Substance: CLARITHROMYCIN
     Indication: Product used for unknown indication
     Dosage: UNK
     Route: 065
     Dates: end: 20170417

REACTIONS (6)
  - Chronic myeloid leukaemia transformation [Fatal]
  - Chronic myeloid leukaemia recurrent [Fatal]
  - Ejection fraction decreased [Recovered/Resolved]
  - Hepatic function abnormal [Recovered/Resolved]
  - Liver disorder [Recovering/Resolving]
  - Sinus tachycardia [Unknown]

NARRATIVE: CASE EVENT DATE: 20161111
